FAERS Safety Report 5581400-3 (Version None)
Quarter: 2007Q4

REPORT INFORMATION
  Report Type: 
  Country: None (occurrence: None)
  Receive Date: 20071231
  Receipt Date: 20071220
  Transmission Date: 20080405
  Serious: Yes (Hospitalization)
  Sender: FDA-Public Use
  Company Number: 2007SP025328

PATIENT
  Age: 51 Year
  Sex: Female

DRUGS (2)
  1. PEG-INTRON [Suspect]
     Indication: HEPATITIS C
     Dosage: SC
     Route: 058
     Dates: start: 20070712
  2. RIBAVIRIN [Suspect]
     Indication: HEPATITIS C
     Dosage: PO
     Route: 048
     Dates: start: 20070712

REACTIONS (14)
  - ABDOMINAL PAIN UPPER [None]
  - ANGER [None]
  - ASTHENIA [None]
  - BACTERIAL INFECTION [None]
  - CANDIDIASIS [None]
  - CLOSTRIDIUM DIFFICILE COLITIS [None]
  - DEHYDRATION [None]
  - DEPRESSION [None]
  - LYMPHADENOPATHY [None]
  - ORAL INTAKE REDUCED [None]
  - PHARYNGOLARYNGEAL PAIN [None]
  - PYREXIA [None]
  - STOMACH DISCOMFORT [None]
  - WHITE BLOOD CELL COUNT DECREASED [None]
